FAERS Safety Report 12285944 (Version 2)
Quarter: 2016Q2

REPORT INFORMATION
  Report Type: Spontaneous
  Country: IT (occurrence: IT)
  Receive Date: 20160420
  Receipt Date: 20160512
  Transmission Date: 20160815
  Serious: Yes (Other)
  Sender: FDA-Public Use
  Company Number: IT-SA-2016SA074377

PATIENT
  Age: 63 Year
  Sex: Male
  Weight: 66 kg

DRUGS (8)
  1. NICOZID [Suspect]
     Active Substance: ISONIAZID
     Indication: BONE TUBERCULOSIS
     Route: 048
     Dates: start: 20060103, end: 20060403
  2. BENADON [Concomitant]
     Active Substance: PYRIDOXINE HYDROCHLORIDE
     Dosage: STRENGTH: 30 MG
     Route: 048
     Dates: start: 20060103
  3. PIRALDINA [Suspect]
     Active Substance: PYRAZINAMIDE
     Indication: BONE TUBERCULOSIS
     Route: 048
     Dates: start: 20060103, end: 20060403
  4. ORUDIS [Concomitant]
     Active Substance: KETOPROFEN
     Dosage: DOSE:1 UNIT(S)
     Dates: start: 20060103
  5. RIFADIN [Suspect]
     Active Substance: RIFAMPIN
     Indication: BONE TUBERCULOSIS
     Route: 048
     Dates: start: 20060103, end: 20060403
  6. ZANTAC [Concomitant]
     Active Substance: RANITIDINE HYDROCHLORIDE
     Dosage: STRENGTH: 300 MG
     Route: 048
     Dates: start: 20060103
  7. ETAPIAM [Suspect]
     Active Substance: ETHAMBUTOL HYDROCHLORIDE
     Indication: BONE TUBERCULOSIS
     Route: 048
     Dates: start: 20060103, end: 20060403
  8. ZYLORIC [Concomitant]
     Active Substance: ALLOPURINOL
     Dosage: FORM: DIVISIBLE TABLETS?STRENGTH: 300 MG
     Route: 048
     Dates: start: 20060103

REACTIONS (1)
  - Musculoskeletal pain [Recovering/Resolving]

NARRATIVE: CASE EVENT DATE: 20060403
